FAERS Safety Report 9061877 (Version 3)
Quarter: 2013Q1

REPORT INFORMATION
  Report Type: Spontaneous
  Country: US (occurrence: None)
  Receive Date: 20130122
  Receipt Date: 20130318
  Transmission Date: 20140127
  Serious: Yes (Other)
  Sender: FDA-Public Use
  Company Number: ACO_33770_2013

PATIENT
  Age: 63 Year
  Sex: Female
  Weight: 51.7 kg

DRUGS (7)
  1. AMPYRA [Suspect]
     Indication: GAIT DISTURBANCE
     Route: 048
     Dates: start: 20130107
  2. COPAXONE (GLATIRAMER ACETATE) [Concomitant]
  3. AMOXICILLIN (AMOXICILLIN TRIHYDRATE) [Concomitant]
  4. UROXATRAL (ALFUZOSIN HYDROCHLORIDE) [Concomitant]
  5. DITROPAN XL (OXYBUTYNIN HYDROCHLORIDE) [Concomitant]
  6. CALTRATE (CALCIUM CARBONATE) TABLET [Concomitant]
  7. COLACE (DOCUSATE SODIUM) [Concomitant]

REACTIONS (5)
  - Anal haemorrhage [None]
  - Haemorrhoids [None]
  - Pain in extremity [None]
  - Insomnia [None]
  - Rectal haemorrhage [None]
